FAERS Safety Report 6680948-8 (Version None)
Quarter: 2010Q2

REPORT INFORMATION
  Report Type: 
  Country: None (occurrence: None)
  Receive Date: 20100414
  Receipt Date: 20100405
  Transmission Date: 20101027
  Serious: Yes (Other)
  Sender: FDA-Public Use
  Company Number: US-PFIZER INC-2010023003

PATIENT
  Sex: Female

DRUGS (1)
  1. REVATIO [Suspect]
     Indication: PULMONARY HYPERTENSION
     Dosage: 20 MG, 3X/DAY
     Route: 048
     Dates: start: 20100101, end: 20100101

REACTIONS (6)
  - ARTHRALGIA [None]
  - CHEST PAIN [None]
  - COELIAC DISEASE [None]
  - HYPERTENSION [None]
  - MUSCLE SPASMS [None]
  - RENAL PAIN [None]
